FAERS Safety Report 4383842-0 (Version None)
Quarter: 2004Q2

REPORT INFORMATION
  Report Type: 
  Country: None (occurrence: None)
  Receive Date: 20040615
  Receipt Date: 20030421
  Transmission Date: 20050107
  Serious: Yes (Hospitalization)
  Sender: FDA-Public Use
  Company Number: 2003US005064

PATIENT
  Age: 47 Year
  Sex: Male
  Weight: 83.9 kg

DRUGS (3)
  1. PROGRAF [Suspect]
     Indication: LIVER TRANSPLANT
     Dosage: 1 MG, BID, ORAL; 0.5 MG, UID/QD
     Route: 048
     Dates: start: 19991221
  2. MAGNESIUM OXIDE (MAGNESIUM OXIDE) [Concomitant]
  3. PRILOSEC [Concomitant]

REACTIONS (3)
  - ASCITES [None]
  - DIABETES MELLITUS [None]
  - DRUG LEVEL INCREASED [None]
